FAERS Safety Report 9184587 (Version 2)
Quarter: 2013Q1

REPORT INFORMATION
  Report Type: Report from Study
  Country: BR (occurrence: BR)
  Receive Date: 20130324
  Receipt Date: 20130328
  Transmission Date: 20140127
  Serious: Yes (Death, Hospitalization, Other)
  Sender: FDA-Public Use
  Company Number: BR-ACTELION-A-CH2013-81091

PATIENT
  Age: 35 Year
  Sex: Female

DRUGS (1)
  1. TRACLEER [Suspect]
     Indication: PULMONARY ARTERIAL HYPERTENSION
     Dosage: UNK
     Route: 048
     Dates: start: 200812

REACTIONS (6)
  - Sepsis [Fatal]
  - Appendicitis perforated [Fatal]
  - Abdominal abscess [Unknown]
  - Salpingectomy [Unknown]
  - Oophorectomy [Unknown]
  - Hysterectomy [Unknown]
